FAERS Safety Report 11336722 (Version 1)
Quarter: 2015Q3

REPORT INFORMATION
  Report Type: Spontaneous
  Country: US (occurrence: US)
  Receive Date: 20150804
  Receipt Date: 20150804
  Transmission Date: 20151125
  Serious: No
  Sender: FDA-Public Use
  Company Number: ALCN2015US004737

PATIENT
  Age: 89 Year
  Sex: Female

DRUGS (4)
  1. DUREZOL [Suspect]
     Active Substance: DIFLUPREDNATE
     Dosage: 1 GTT, QD
     Route: 047
     Dates: start: 20150729
  2. DUREZOL [Suspect]
     Active Substance: DIFLUPREDNATE
     Indication: POSTOPERATIVE CARE
     Dosage: 1 GTT, 6QD
     Route: 047
     Dates: start: 20150708, end: 20150722
  3. DUREZOL [Suspect]
     Active Substance: DIFLUPREDNATE
     Dosage: 1 GTT, QID
     Route: 047
     Dates: start: 20150722
  4. ILEVRO [Suspect]
     Active Substance: NEPAFENAC
     Indication: POSTOPERATIVE CARE
     Dosage: 1 GTT, QD
     Route: 047
     Dates: start: 20150708

REACTIONS (4)
  - Off label use [Recovered/Resolved]
  - Hyperhidrosis [Not Recovered/Not Resolved]
  - Rash pruritic [Not Recovered/Not Resolved]
  - Vitreous floaters [Recovered/Resolved]

NARRATIVE: CASE EVENT DATE: 20150708
